FAERS Safety Report 18354674 (Version 1)
Quarter: 2020Q4

REPORT INFORMATION
  Report Type: Spontaneous
  Country: US (occurrence: US)
  Receive Date: 20201006
  Receipt Date: 20201006
  Transmission Date: 20210114
  Serious: Yes (Hospitalization)
  Sender: FDA-Public Use
  Company Number: None

PATIENT
  Age: 74 Year
  Sex: Male

DRUGS (2)
  1. ASPIRIN 81 MG [Suspect]
     Active Substance: ASPIRIN
     Route: 048
     Dates: start: 20160307, end: 20200807
  2. WARFARIN (WARFARIN NA (GOLDEN STATE) 5MG TAB) [Suspect]
     Active Substance: WARFARIN SODIUM
     Route: 048
     Dates: start: 20190906, end: 20200807

REACTIONS (2)
  - Upper gastrointestinal haemorrhage [None]
  - Varices oesophageal [None]

NARRATIVE: CASE EVENT DATE: 20200807
